FAERS Safety Report 8886720 (Version 1)
Quarter: 2012Q4

REPORT INFORMATION
  Report Type: 
  Country: US (occurrence: US)
  Receive Date: 20121105
  Receipt Date: 20121105
  Transmission Date: 20130627
  Serious: No
  Sender: FDA-Public Use
  Company Number: US-VERTEX PHARMACEUTICAL INC.-2012-024008

PATIENT
  Age: 56 Year
  Sex: Male
  Weight: 88 kg

DRUGS (7)
  1. VX-950 [Suspect]
     Indication: HEPATITIS C
     Dosage: 750 mg, tid
     Route: 048
  2. PEGASYS [Concomitant]
     Indication: HEPATITIS C
  3. RIBAPAK [Concomitant]
     Indication: HEPATITIS C
     Dosage: 1200/ day
  4. CITALOPRAM [Concomitant]
     Dosage: 10 mg, UNK
  5. HUMALOG [Concomitant]
     Dosage: 100 ml, UNK
  6. LANTUS [Concomitant]
     Dosage: 100 ml, UNK
  7. ZOLPIDEM [Concomitant]
     Dosage: 5 mg, UNK

REACTIONS (2)
  - Fatigue [Unknown]
  - Pruritus [Unknown]
